FAERS Safety Report 19947020 (Version 6)
Quarter: 2022Q1

REPORT INFORMATION
  Report Type: Report from Study
  Country: CA (occurrence: CA)
  Receive Date: 20211013
  Receipt Date: 20220304
  Transmission Date: 20220423
  Serious: Yes (Other)
  Sender: FDA-Public Use
  Company Number: CA-BAUSCH-BL-2021-029439

PATIENT

DRUGS (10)
  1. CONTRAVE [Suspect]
     Active Substance: BUPROPION HYDROCHLORIDE\NALTREXONE HYDROCHLORIDE
     Indication: Weight control
     Dosage: 90/8 MG, 2 TAB Q AM, 2 TAB Q PM
     Route: 048
     Dates: start: 20210810, end: 2021
  2. CONTRAVE [Suspect]
     Active Substance: BUPROPION HYDROCHLORIDE\NALTREXONE HYDROCHLORIDE
     Dosage: 90/8 MG, 1 TAB/DAY (1 DOSAGE FORMS, 1 IN 24 HR)
     Route: 048
     Dates: start: 20211101, end: 20211101
  3. CONTRAVE [Suspect]
     Active Substance: BUPROPION HYDROCHLORIDE\NALTREXONE HYDROCHLORIDE
     Dosage: 90/8 MG, 1 TAB AM, 1 TAB PM
     Route: 048
     Dates: start: 20211102, end: 20211107
  4. CONTRAVE [Suspect]
     Active Substance: BUPROPION HYDROCHLORIDE\NALTREXONE HYDROCHLORIDE
     Dosage: 90/8 MG, 2 TAB AM, 1 TAB PM (1 IN 12 HR)
     Route: 048
     Dates: start: 20211108, end: 20211114
  5. CONTRAVE [Suspect]
     Active Substance: BUPROPION HYDROCHLORIDE\NALTREXONE HYDROCHLORIDE
     Dosage: 90/8 MG, 2 TAB AM, 2 TAB PM
     Route: 048
     Dates: start: 20211115, end: 20211117
  6. CONTRAVE [Suspect]
     Active Substance: BUPROPION HYDROCHLORIDE\NALTREXONE HYDROCHLORIDE
     Dosage: 90/8 MG, 1 TAB AM, 1 TAB PM
     Route: 048
     Dates: start: 20211118
  7. NEXIUM [Concomitant]
     Active Substance: ESOMEPRAZOLE MAGNESIUM
     Indication: Gastrooesophageal reflux disease
     Dosage: 1 IN 1 D
     Route: 048
  8. ESTRADIOL [Concomitant]
     Active Substance: ESTRADIOL
     Indication: Menopause
     Dosage: 1 IN 1 D
     Route: 048
  9. PERINDOPRIL ERBUMINE [Concomitant]
     Active Substance: PERINDOPRIL ERBUMINE
     Indication: Hypertension
     Dosage: 4 MG, 1 IN 1 D
     Route: 048
  10. TRINTELLIX [Concomitant]
     Active Substance: VORTIOXETINE HYDROBROMIDE
     Indication: Depression
     Dosage: 1 IN 1 D
     Route: 048

REACTIONS (26)
  - Choking [Not Recovered/Not Resolved]
  - Gastrooesophageal reflux disease [Not Recovered/Not Resolved]
  - Food aversion [Not Recovered/Not Resolved]
  - Ill-defined disorder [Unknown]
  - Abdominal discomfort [Unknown]
  - Pollakiuria [Recovered/Resolved]
  - Sleep apnoea syndrome [Not Recovered/Not Resolved]
  - Weight increased [Not Recovered/Not Resolved]
  - Food craving [Not Recovered/Not Resolved]
  - Illness [Unknown]
  - Dry mouth [Not Recovered/Not Resolved]
  - Nausea [Not Recovered/Not Resolved]
  - Fatigue [Not Recovered/Not Resolved]
  - Malaise [Unknown]
  - Dysgeusia [Not Recovered/Not Resolved]
  - Diarrhoea [Recovered/Resolved]
  - Constipation [Not Recovered/Not Resolved]
  - Vomiting [Not Recovered/Not Resolved]
  - Gastroenteritis viral [Unknown]
  - Retching [Not Recovered/Not Resolved]
  - Product dose omission in error [Unknown]
  - Product use complaint [Unknown]
  - Inappropriate schedule of product administration [Unknown]
  - Drug titration error [Unknown]
  - Patient dissatisfaction with treatment [Unknown]
  - Therapy cessation [Unknown]

NARRATIVE: CASE EVENT DATE: 20210101
